FAERS Safety Report 19075967 (Version 2)
Quarter: 2021Q2

REPORT INFORMATION
  Report Type: Spontaneous
  Country: US (occurrence: US)
  Receive Date: 20210331
  Receipt Date: 20210416
  Transmission Date: 20210717
  Serious: Yes (Death, Life-Threatening, Hospitalization, Other)
  Sender: FDA-Public Use
  Company Number: US-009507513-2103USA006707

PATIENT
  Age: 70 Year
  Sex: Male

DRUGS (6)
  1. AXITINIB [Suspect]
     Active Substance: AXITINIB
     Indication: METASTASES TO BONE
  2. LEVOTHYROXINE SODIUM. [Concomitant]
     Active Substance: LEVOTHYROXINE SODIUM
     Dosage: 25 MICROGRAM, QD
     Route: 048
  3. CARVEDILOL. [Concomitant]
     Active Substance: CARVEDILOL
     Dosage: 12.5 MILLIGRAM, BID
     Route: 048
  4. KEYTRUDA [Suspect]
     Active Substance: PEMBROLIZUMAB
     Indication: METASTASES TO BONE
  5. AXITINIB [Suspect]
     Active Substance: AXITINIB
     Indication: RENAL CELL CARCINOMA
     Dosage: 7 MILLIGRAM, BID
     Route: 048
  6. KEYTRUDA [Suspect]
     Active Substance: PEMBROLIZUMAB
     Indication: RENAL CELL CARCINOMA
     Dosage: 200 MILLIGRAM, Q3W
     Route: 042

REACTIONS (5)
  - Acute myocardial infarction [Not Recovered/Not Resolved]
  - Hyponatraemia [Not Recovered/Not Resolved]
  - Myxoedema coma [Fatal]
  - Cardiogenic shock [Not Recovered/Not Resolved]
  - Secondary adrenocortical insufficiency [Not Recovered/Not Resolved]
